FAERS Safety Report 8383672-9 (Version None)
Quarter: 2012Q2

REPORT INFORMATION
  Report Type: 
  Country: None (occurrence: None)
  Receive Date: 20120524
  Receipt Date: 20111208
  Transmission Date: 20120825
  Serious: Yes (Death, Other)
  Sender: FDA-Public Use
  Company Number: GB-ROCHE-1014718

PATIENT
  Sex: Female

DRUGS (4)
  1. LUCENTIS [Suspect]
     Indication: AGE-RELATED MACULAR DEGENERATION
     Dosage: FREQUENCY OT
     Route: 050
     Dates: start: 20110821
  2. DIAZEPAM [Concomitant]
     Dates: start: 20101001
  3. ACETAMINOPHEN [Concomitant]
     Dates: start: 20100901
  4. DEXAMETHASONE [Concomitant]

REACTIONS (2)
  - DEATH [None]
  - BRONCHIAL CARCINOMA [None]
